FAERS Safety Report 9908159 (Version 1)
Quarter: 2014Q1

REPORT INFORMATION
  Report Type: Spontaneous
  Country: US (occurrence: None)
  Receive Date: 20140214
  Receipt Date: 20140214
  Transmission Date: 20141002
  Serious: No
  Sender: FDA-Public Use
  Company Number: None

PATIENT
  Sex: 0

DRUGS (2)
  1. DEXAMPHETAMINE [Suspect]
     Dosage: TABLET
     Route: 048
  2. METHYLPHENIDATE HCL [Suspect]
     Dosage: TABLET
     Route: 048

REACTIONS (1)
  - Drug dispensing error [None]
